FAERS Safety Report 5938446-2 (Version None)
Quarter: 2008Q4

REPORT INFORMATION
  Report Type: 
  Country: None (occurrence: None)
  Receive Date: 20081103
  Receipt Date: 20081022
  Transmission Date: 20090506
  Serious: Yes (Other)
  Sender: FDA-Public Use
  Company Number: US-ROCHE-588504

PATIENT
  Sex: Male

DRUGS (1)
  1. XELODA [Suspect]
     Indication: BREAST CANCER STAGE II
     Route: 065

REACTIONS (2)
  - ADVERSE EVENT [None]
  - VOCAL CORD PARALYSIS [None]
